FAERS Safety Report 18872138 (Version 2)
Quarter: 2021Q2

REPORT INFORMATION
  Report Type: Spontaneous
  Country: US (occurrence: US)
  Receive Date: 20210210
  Receipt Date: 20210401
  Transmission Date: 20210717
  Serious: Yes (Other)
  Sender: FDA-Public Use
  Company Number: US-GLAXOSMITHKLINE-US2021GSK034701

PATIENT
  Sex: Female

DRUGS (7)
  1. ZANTAC [Suspect]
     Active Substance: RANITIDINE HYDROCHLORIDE
     Indication: ABDOMINAL DISCOMFORT
     Dosage: 300 MG, WE
     Route: 065
     Dates: start: 198501, end: 200001
  2. RANITIDINE. [Suspect]
     Active Substance: RANITIDINE
     Indication: ABDOMINAL DISCOMFORT
     Dosage: 300 MG, WE
     Route: 065
     Dates: start: 198501, end: 200001
  3. RANITIDINE CAPSULE [Suspect]
     Active Substance: RANITIDINE
     Indication: ABDOMINAL DISCOMFORT
     Dosage: 300 MG, WE
     Route: 065
     Dates: start: 198501, end: 200001
  4. ZANTAC [Suspect]
     Active Substance: RANITIDINE HYDROCHLORIDE
     Indication: ABDOMINAL DISCOMFORT
     Dosage: 300 MG, WE
     Route: 065
     Dates: start: 198501, end: 200001
  5. RANITIDINE. [Suspect]
     Active Substance: RANITIDINE
     Dosage: UNKNOWN AT THIS TIME PRESCRIPTION
     Route: 065
  6. RANITIDINE. [Suspect]
     Active Substance: RANITIDINE
     Dosage: UNKNOWN AT THIS TIME PRESCRIPTION
     Route: 065
  7. ZANTAC [Suspect]
     Active Substance: RANITIDINE HYDROCHLORIDE
     Indication: ABDOMINAL DISCOMFORT
     Dosage: 300 MG, WE
     Route: 065
     Dates: start: 198501, end: 200001

REACTIONS (1)
  - Breast cancer [Unknown]
